FAERS Safety Report 6029512-4 (Version None)
Quarter: 2009Q1

REPORT INFORMATION
  Report Type: 
  Country: None (occurrence: None)
  Receive Date: 20090106
  Receipt Date: 20081223
  Transmission Date: 20090719
  Serious: Yes (Other)
  Sender: FDA-Public Use
  Company Number: US-WATSON-2008-07596

PATIENT
  Sex: Male

DRUGS (1)
  1. FENTANYL [Suspect]
     Indication: DRUG USE FOR UNKNOWN INDICATION
     Dosage: 1 PATCH, SINGLE
     Route: 065
     Dates: start: 20080101, end: 20080101

REACTIONS (1)
  - SUICIDE ATTEMPT [None]
